FAERS Safety Report 21908138 (Version 1)
Quarter: 2023Q1

REPORT INFORMATION
  Report Type: Spontaneous
  Country: US (occurrence: None)
  Receive Date: 20230124
  Receipt Date: 20230124
  Transmission Date: 20230418
  Serious: Yes (Other)
  Sender: FDA-Public Use
  Company Number: None

PATIENT
  Age: 30 Year
  Sex: Female
  Weight: 54 kg

DRUGS (1)
  1. HERBALS\MITRAGYNINE [Suspect]
     Active Substance: HERBALS\MITRAGYNINE
     Indication: Substance use
     Dosage: OTHER QUANTITY : 0.5 OUNCE(S);?FREQUENCY : TWICE A DAY;?
     Route: 048
     Dates: start: 20230120, end: 20230120

REACTIONS (8)
  - Substance use [None]
  - Product complaint [None]
  - Euphoric mood [None]
  - Impaired driving ability [None]
  - Confusional state [None]
  - Product use issue [None]
  - Therapeutic drug monitoring analysis not performed [None]
  - Product communication issue [None]

NARRATIVE: CASE EVENT DATE: 20230120
